FAERS Safety Report 11024982 (Version 4)
Quarter: 2015Q2

REPORT INFORMATION
  Report Type: Spontaneous
  Country: US (occurrence: US)
  Receive Date: 20150414
  Receipt Date: 20150529
  Transmission Date: 20150821
  Serious: Yes (Other)
  Sender: FDA-Public Use
  Company Number: US-ENDO PHARMACEUTICALS INC.-2015-000354

PATIENT
  Age: 54 Year
  Sex: Male

DRUGS (5)
  1. DIAZEPAM 10MG [Suspect]
     Active Substance: DIAZEPAM
     Indication: DELUSION
  2. DIAZEPAM 10MG [Suspect]
     Active Substance: DIAZEPAM
     Indication: ANXIETY
  3. GABAPENTIN. [Concomitant]
     Active Substance: GABAPENTIN
     Indication: NERVOUSNESS
     Route: 065
  4. DIAZEPAM 10MG [Suspect]
     Active Substance: DIAZEPAM
     Indication: NERVOUSNESS
     Route: 065
     Dates: start: 2005
  5. OXYCONTIN [Concomitant]
     Active Substance: OXYCODONE HYDROCHLORIDE
     Indication: PAIN
     Route: 065
     Dates: start: 201502

REACTIONS (7)
  - Headache [Not Recovered/Not Resolved]
  - Drug ineffective [Not Recovered/Not Resolved]
  - Spinal fusion surgery [Unknown]
  - Feeling abnormal [Not Recovered/Not Resolved]
  - Product quality issue [Not Recovered/Not Resolved]
  - Rectal haemorrhage [Not Recovered/Not Resolved]
  - Neck surgery [Unknown]

NARRATIVE: CASE EVENT DATE: 2014
